FAERS Safety Report 24062548 (Version 1)
Quarter: 2024Q3

REPORT INFORMATION
  Report Type: Spontaneous
  Country: JP (occurrence: None)
  Receive Date: 20240708
  Receipt Date: 20240708
  Transmission Date: 20241016
  Serious: Yes (Other)
  Sender: ASTRAZENECA
  Company Number: 2024A151761

PATIENT
  Sex: Female

DRUGS (2)
  1. SYMBICORT [Suspect]
     Active Substance: BUDESONIDE\FORMOTEROL FUMARATE DIHYDRATE
     Dosage: 30 DOSE, UNKNOWN UNKNOWN
     Route: 055
  2. BENZALKONIUM CHLORIDE [Concomitant]
     Active Substance: BENZALKONIUM CHLORIDE
     Dosage: DOSE UNKNOWN
     Route: 048

REACTIONS (7)
  - Urinary retention [Unknown]
  - Aspergillus infection [Unknown]
  - Lichen planus [Unknown]
  - Stomatitis [Unknown]
  - Photosensitivity reaction [Unknown]
  - Limb discomfort [Unknown]
  - Primary hyperaldosteronism [Unknown]
